FAERS Safety Report 22636500 (Version 5)
Quarter: 2024Q3

REPORT INFORMATION
  Report Type: Spontaneous
  Country: US (occurrence: US)
  Receive Date: 20230623
  Receipt Date: 20240916
  Transmission Date: 20241016
  Serious: No
  Sender: PFIZER
  Company Number: US-PFIZER INC-202300227136

PATIENT
  Age: 86 Year
  Sex: Female
  Weight: 70.31 kg

DRUGS (3)
  1. IBRANCE [Suspect]
     Active Substance: PALBOCICLIB
     Indication: Hormone receptor positive HER2 negative breast cancer
     Dosage: 21 DAYS ON AND 1 WEEKS OFF
     Route: 048
  2. IBRANCE [Suspect]
     Active Substance: PALBOCICLIB
     Dosage: 21 DAYS ON AND 2 WEEKS OFF
     Route: 048
  3. IBRANCE [Suspect]
     Active Substance: PALBOCICLIB
     Dosage: TAKE 1 CAPSULE (75 MG TOTAL) BY MOUTH ONCE DAILY TAKE DAILY DAYS 1-14, FOLLOWED BY 14 DAYS OFF
     Route: 048

REACTIONS (2)
  - Laboratory test abnormal [Unknown]
  - Off label use [Unknown]
